FAERS Safety Report 8828176 (Version 1)
Quarter: 2012Q4

REPORT INFORMATION
  Report Type: Report from Study
  Country: SE (occurrence: SE)
  Receive Date: 20121005
  Receipt Date: 20121005
  Transmission Date: 20130627
  Serious: Yes (Other)
  Sender: FDA-Public Use
  Company Number: SE-PFIZER INC-2011118201

PATIENT
  Age: 59 Year
  Sex: Male

DRUGS (5)
  1. ESTRAMUSTINE SODIUM PHOSPHATE [Suspect]
     Indication: PROSTATE CANCER
     Dosage: 140 mg, 2x/day, for 7 consecutive days weeks 2, 4, 6
     Route: 048
  2. ETOPOSIDE [Suspect]
     Indication: PROSTATE CANCER
     Dosage: 50 mg, 2x/day, for 7 consecutive days weeks 2, 4, 6
     Route: 048
  3. KETOCONAZOLE [Suspect]
     Indication: PROSTATE CANCER
     Dosage: 200 mg, 3x/day, for 7 consecutive days weeks 1, 3, 5
     Route: 048
  4. SENDOXAN [Suspect]
     Indication: PROSTATE CANCER
     Dosage: 50 mg, 2x/day, for 7 consecutive days weeks 1, 3, 5
     Route: 048
  5. PREDNISONE [Concomitant]
     Indication: PROPHYLAXIS
     Dosage: 10 mg, 1x/day
     Route: 048

REACTIONS (3)
  - Deep vein thrombosis [Unknown]
  - Cholestasis [Recovered/Resolved]
  - Anaemia [Unknown]
